APPROVED DRUG PRODUCT: MELOXICAM
Active Ingredient: MELOXICAM
Strength: 7.5MG/5ML **Federal Register determination that product was not discontinued or withdrawn for safety or effectiveness reasons**
Dosage Form/Route: SUSPENSION;ORAL
Application: N021530 | Product #001
Applicant: AVONDALE PHARMACEUTICALS LLC
Approved: Jun 1, 2004 | RLD: Yes | RS: Yes | Type: RX